FAERS Safety Report 16411992 (Version 1)
Quarter: 2019Q2

REPORT INFORMATION
  Report Type: Report from Study
  Country: IT (occurrence: IT)
  Receive Date: 20190610
  Receipt Date: 20190610
  Transmission Date: 20190711
  Serious: Yes (Hospitalization)
  Sender: FDA-Public Use
  Company Number: IT-MYLANLABS-2019M1053828

PATIENT
  Age: 67 Year
  Sex: Female

DRUGS (2)
  1. NIFEDICOR 20 MG/ML GOCCE ORALI, SOLUZIONE [Suspect]
     Active Substance: NIFEDIPINE
     Indication: HYPERTENSION
     Dosage: 10 GTT DROPS, TOTAL
     Route: 060
     Dates: start: 20181207, end: 20181207
  2. COSYREL [Concomitant]
     Indication: HYPERTENSION
     Dosage: 1 DOSAGE FORM
     Route: 048

REACTIONS (3)
  - Lip oedema [Recovering/Resolving]
  - Face oedema [Recovering/Resolving]
  - Erythema [Recovering/Resolving]

NARRATIVE: CASE EVENT DATE: 20181207
